FAERS Safety Report 23264344 (Version 2)
Quarter: 2024Q1

REPORT INFORMATION
  Report Type: Spontaneous
  Country: US (occurrence: US)
  Receive Date: 20231205
  Receipt Date: 20240202
  Transmission Date: 20240409
  Serious: Yes (Other)
  Sender: FDA-Public Use
  Company Number: US-RADIUS HEALTH, INC.-2023US006215

PATIENT
  Age: 77 Year
  Sex: Female

DRUGS (1)
  1. TYMLOS [Suspect]
     Active Substance: ABALOPARATIDE
     Indication: Bone density abnormal
     Dosage: 80 MCG, QD [FULL DOSE]
     Route: 065
     Dates: start: 20230330

REACTIONS (2)
  - Corneal degeneration [Unknown]
  - Serum procollagen type I N-terminal propeptide decreased [Unknown]

NARRATIVE: CASE EVENT DATE: 20231017
